FAERS Safety Report 4937535-9 (Version None)
Quarter: 2006Q1

REPORT INFORMATION
  Report Type: 
  Country: None (occurrence: None)
  Receive Date: 20060309
  Receipt Date: 20060222
  Transmission Date: 20060701
  Serious: Yes (Life-Threatening, Hospitalization)
  Sender: FDA-Public Use
  Company Number: JP-MERCK-0602USA05646

PATIENT
  Age: 63 Year
  Sex: Female
  Weight: 48 kg

DRUGS (7)
  1. ALDOMET [Suspect]
     Indication: HYPERTENSION
     Route: 048
     Dates: end: 20051214
  2. ALDOMET [Suspect]
     Route: 048
     Dates: start: 20051215, end: 20060220
  3. COZAAR [Concomitant]
     Indication: HYPERTENSION
     Route: 048
     Dates: start: 20050301
  4. NORVASC [Concomitant]
     Indication: HYPERTENSION
     Route: 048
     Dates: start: 20050301
  5. BUP-4 [Concomitant]
     Route: 048
     Dates: start: 20060101
  6. [THERAPY UNSPECIFIED] [Concomitant]
     Route: 065
  7. ARTIST [Concomitant]
     Route: 048
     Dates: start: 20051019

REACTIONS (4)
  - AZOTAEMIA [None]
  - DEPRESSED LEVEL OF CONSCIOUSNESS [None]
  - MOVEMENT DISORDER [None]
  - POSTURE ABNORMAL [None]
